FAERS Safety Report 6849696-5 (Version None)
Quarter: 2010Q3

REPORT INFORMATION
  Report Type: 
  Country: None (occurrence: None)
  Receive Date: 20100716
  Receipt Date: 20071003
  Transmission Date: 20110219
  Serious: No
  Sender: FDA-Public Use
  Company Number: US-PFIZER INC-2007084257

PATIENT
  Age: 55 Year
  Sex: Female

DRUGS (2)
  1. CHANTIX [Suspect]
  2. LYRICA [Suspect]

REACTIONS (3)
  - ADVERSE EVENT [None]
  - CHEST PAIN [None]
  - NAUSEA [None]
